FAERS Safety Report 6269771-6 (Version None)
Quarter: 2009Q3

REPORT INFORMATION
  Report Type: 
  Country: None (occurrence: None)
  Receive Date: 20090714
  Receipt Date: 20090707
  Transmission Date: 20100115
  Serious: Yes (Other)
  Sender: FDA-Public Use
  Company Number: 1000007298

PATIENT
  Age: 85 Year
  Sex: Female

DRUGS (4)
  1. CELEXA [Suspect]
     Dosage: 10 MG (10 MG, 1 IN 1 D), ORAL
     Route: 048
  2. FLUCONAZOLE [Suspect]
     Indication: FUNGAL SKIN INFECTION
     Dosage: 200 MG
  3. GABAPENTIN [Concomitant]
  4. LOVASTATIN [Concomitant]

REACTIONS (2)
  - DRUG INTERACTION [None]
  - TORSADE DE POINTES [None]
